FAERS Safety Report 20852220 (Version 2)
Quarter: 2022Q2

REPORT INFORMATION
  Report Type: Spontaneous
  Country: US (occurrence: US)
  Receive Date: 20220520
  Receipt Date: 20220629
  Transmission Date: 20220721
  Serious: Yes (Hospitalization, Other)
  Sender: FDA-Public Use
  Company Number: US-BRISTOL-MYERS SQUIBB COMPANY-2022-027837

PATIENT
  Age: 70 Year
  Sex: Female
  Weight: 58.9 kg

DRUGS (1)
  1. POMALYST [Suspect]
     Active Substance: POMALIDOMIDE
     Indication: Plasma cell myeloma
     Dosage: 2 W , 2 W OFF
     Route: 048
     Dates: start: 20220301, end: 20220607

REACTIONS (5)
  - Pneumonia [Unknown]
  - Dizziness [Unknown]
  - Illness [Unknown]
  - Dyspnoea [Recovered/Resolved]
  - Off label use [Unknown]
